FAERS Safety Report 18600133 (Version 1)
Quarter: 2020Q4

REPORT INFORMATION
  Report Type: Spontaneous
  Country: US (occurrence: US)
  Receive Date: 20201210
  Receipt Date: 20201210
  Transmission Date: 20210114
  Serious: No
  Sender: FDA-Public Use
  Company Number: US-BAYER-2020-265557

PATIENT
  Sex: Female

DRUGS (2)
  1. SELENIUM [Suspect]
     Active Substance: SELENIUM
  2. MIRALAX [Suspect]
     Active Substance: POLYETHYLENE GLYCOL 3350
     Indication: GASTROINTESTINAL DISORDER
     Dosage: UNK (HALF OF THE WHITE SECTION IN CAP)
     Route: 048
     Dates: end: 20200212

REACTIONS (6)
  - Anal fissure [Unknown]
  - Frequent bowel movements [Unknown]
  - Dyschezia [Unknown]
  - Wrong technique in product usage process [None]
  - Diarrhoea [Unknown]
  - Flatulence [Unknown]
